FAERS Safety Report 16695852 (Version 1)
Quarter: 2019Q3

REPORT INFORMATION
  Report Type: Spontaneous
  Country: US (occurrence: US)
  Receive Date: 20190626
  Receipt Date: 20190626
  Transmission Date: 20191004
  Serious: No
  Sender: FDA-Public Use
  Company Number: None

PATIENT
  Age: 67 Year
  Sex: Female

DRUGS (3)
  1. REPATHA [Suspect]
     Active Substance: EVOLOCUMAB
     Indication: VERTEBRAL ARTERY STENOSIS
  2. REPATHA [Suspect]
     Active Substance: EVOLOCUMAB
     Indication: VERTEBRAL ARTERY OCCLUSION
  3. REPATHA [Suspect]
     Active Substance: EVOLOCUMAB
     Indication: TYPE V HYPERLIPIDAEMIA
     Route: 058
     Dates: start: 201711

REACTIONS (3)
  - Foot operation [None]
  - Infection [None]
  - Anosmia [None]
